APPROVED DRUG PRODUCT: METHAZOLAMIDE
Active Ingredient: METHAZOLAMIDE
Strength: 50MG
Dosage Form/Route: TABLET;ORAL
Application: A040062 | Product #002 | TE Code: AB
Applicant: ANDA REPOSITORY LLC
Approved: Jan 27, 1994 | RLD: No | RS: Yes | Type: RX